FAERS Safety Report 16202914 (Version 1)
Quarter: 2019Q2

REPORT INFORMATION
  Report Type: Spontaneous
  Country: US (occurrence: US)
  Receive Date: 20190416
  Receipt Date: 20190416
  Transmission Date: 20190711
  Serious: Yes (Death)
  Sender: FDA-Public Use
  Company Number: US-ROCHE-2304912

PATIENT
  Sex: Female

DRUGS (4)
  1. PERJETA [Suspect]
     Active Substance: PERTUZUMAB
     Indication: BREAST NEOPLASM
     Dosage: ONGOING; UNKNOWN?FORM STRENGTH: 300 MG/ML
     Route: 042
     Dates: start: 20190114
  2. HERCEPTIN [Suspect]
     Active Substance: TRASTUZUMAB
     Indication: BREAST NEOPLASM
     Dosage: FORM STRENGTH: SDV 150MG/VL
     Route: 042
     Dates: start: 20190114
  3. PERJETA [Suspect]
     Active Substance: PERTUZUMAB
     Indication: BONE NEOPLASM
  4. HERCEPTIN [Suspect]
     Active Substance: TRASTUZUMAB
     Indication: BONE NEOPLASM

REACTIONS (1)
  - Death [Fatal]
